FAERS Safety Report 5835619-4 (Version None)
Quarter: 2008Q3

REPORT INFORMATION
  Report Type: 
  Country: None (occurrence: None)
  Receive Date: 20080806
  Receipt Date: 20080804
  Transmission Date: 20090109
  Serious: Yes (Death, Hospitalization)
  Sender: FDA-Public Use
  Company Number: PHHO2001NO05661

PATIENT
  Sex: Male

DRUGS (3)
  1. RAD 666 RAD+ [Suspect]
     Indication: HEART TRANSPLANT
     Dosage: 0.75 MG, BID
     Route: 048
     Dates: start: 19990615, end: 20010613
  2. NEORAL [Suspect]
     Indication: HEART TRANSPLANT
     Dates: start: 19990615
  3. PREDNISOLONE [Suspect]
     Indication: HEART TRANSPLANT
     Dates: start: 19990615

REACTIONS (2)
  - MALIGNANT MELANOMA [None]
  - METASTASES TO LYMPH NODES [None]
